FAERS Safety Report 7293996-4 (Version None)
Quarter: 2011Q1

REPORT INFORMATION
  Report Type: 
  Country: None (occurrence: None)
  Receive Date: 20110215
  Receipt Date: 20110207
  Transmission Date: 20110831
  Serious: Yes (Other)
  Sender: FDA-Public Use
  Company Number: US-CEPHALON-2010003204

PATIENT
  Sex: Female
  Weight: 101 kg

DRUGS (3)
  1. NUVIGIL [Suspect]
     Route: 048
     Dates: start: 20110101
  2. PRENATAL VITAMINS [Suspect]
     Indication: PREGNANCY
     Dates: start: 20100110
  3. NUVIGIL [Suspect]
     Indication: HYPERSOMNIA
     Route: 048
     Dates: start: 20091001, end: 20101121

REACTIONS (6)
  - PYREXIA [None]
  - CAESAREAN SECTION [None]
  - DRUG EXPOSURE DURING PREGNANCY [None]
  - FOETAL HEART RATE DISORDER [None]
  - DRUG PRESCRIBING ERROR [None]
  - MATERNAL DRUGS AFFECTING FOETUS [None]
